FAERS Safety Report 8989911 (Version 2)
Quarter: 2013Q1

REPORT INFORMATION
  Report Type: Spontaneous
  Country: FR (occurrence: FR)
  Receive Date: 20121228
  Receipt Date: 20130118
  Transmission Date: 20140127
  Serious: Yes (Hospitalization)
  Sender: FDA-Public Use
  Company Number: FR-GLAXOSMITHKLINE-B0854525A

PATIENT
  Age: 68 Year
  Sex: Female
  Weight: 72 kg

DRUGS (5)
  1. DEROXAT [Suspect]
     Indication: DEPRESSION
     Route: 048
     Dates: start: 20120601, end: 20120710
  2. HALDOL [Concomitant]
     Indication: BIPOLAR I DISORDER
     Dosage: 20DROP PER DAY
     Route: 048
     Dates: start: 1965, end: 20120804
  3. STAGID [Concomitant]
     Indication: TYPE 2 DIABETES MELLITUS
     Dosage: 1TAB THREE TIMES PER DAY
     Route: 048
     Dates: start: 1997, end: 20120804
  4. NOZINAN [Concomitant]
     Indication: BIPOLAR I DISORDER
     Dosage: 25MG PER DAY
     Route: 048
     Dates: end: 20120804
  5. STILNOX [Concomitant]
     Indication: BIPOLAR I DISORDER
     Dosage: 1TAB PER DAY
     Route: 048
     Dates: start: 201205, end: 20120804

REACTIONS (8)
  - Urinary retention [Recovering/Resolving]
  - Motor dysfunction [Recovering/Resolving]
  - Paralysis [Recovering/Resolving]
  - Immobile [Recovering/Resolving]
  - Cerebrovascular accident [Recovering/Resolving]
  - Abasia [Recovering/Resolving]
  - Aphasia [Recovering/Resolving]
  - Catatonia [Recovering/Resolving]
